FAERS Safety Report 8530865-3 (Version None)
Quarter: 2012Q3

REPORT INFORMATION
  Report Type: 
  Country: None (occurrence: None)
  Receive Date: 20120723
  Receipt Date: 20120717
  Transmission Date: 20120928
  Serious: Yes (Hospitalization)
  Sender: FDA-Public Use
  Company Number: SE-ROCHE-1089030

PATIENT
  Age: 68 Year
  Sex: Female

DRUGS (2)
  1. PREDNISOLONE [Concomitant]
     Dosage: DOSAGE- 1 GMN
  2. MABTHERA [Suspect]
     Indication: RHEUMATOID ARTHRITIS
     Route: 042
     Dates: start: 20111117, end: 20120401

REACTIONS (1)
  - BREAST CANCER [None]
